FAERS Safety Report 9210852 (Version 2)
Quarter: 2014Q2

REPORT INFORMATION
  Report Type: Other
  Country: FR (occurrence: FR)
  Receive Date: 20130404
  Receipt Date: 20140506
  Transmission Date: 20141212
  Serious: Yes (Hospitalization, Other)
  Sender: FDA-Public Use
  Company Number: FR-PURDUE-USA-2013-0100677

PATIENT
  Age: 85 Year
  Sex: Female

DRUGS (6)
  1. TRAMADOL (SIMILAR TO NDA 21-745) [Suspect]
     Indication: ARTHRALGIA
     Dosage: 400 MG, DAILY
     Route: 048
  2. VALSARTAN [Concomitant]
     Indication: HYPERTENSION
     Dosage: UNKNOWN
  3. HYDROCHLOROTHIAZIDE [Concomitant]
     Indication: HYPERTENSION
     Dosage: UNKNOWN
  4. NEBIVOLOL [Concomitant]
     Indication: HYPERTENSION
     Dosage: UNKNOWN
  5. DABIGATRAN [Concomitant]
     Indication: PRODUCT USED FOR UNKNOWN INDICATION
     Dosage: UNKNOWN
  6. OXAZEPAM [Concomitant]
     Indication: PRODUCT USED FOR UNKNOWN INDICATION
     Dosage: UNKNOWN

REACTIONS (3)
  - Hypoglycaemia [Recovered/Resolved]
  - Fall [Recovered/Resolved]
  - Loss of consciousness [Unknown]
